FAERS Safety Report 7044822-X (Version None)
Quarter: 2010Q4

REPORT INFORMATION
  Report Type: 
  Country: None (occurrence: None)
  Receive Date: 20101014
  Receipt Date: 20100930
  Transmission Date: 20110411
  Serious: Yes (Hospitalization)
  Sender: FDA-Public Use
  Company Number: PHHY2010AU59503

PATIENT
  Sex: Male

DRUGS (1)
  1. CLOZARIL [Suspect]
     Dosage: 300 MG
     Dates: start: 19950808

REACTIONS (3)
  - EMPHYSEMA [None]
  - LUNG INFECTION [None]
  - WHITE BLOOD CELL COUNT DECREASED [None]
